FAERS Safety Report 6975650-9 (Version None)
Quarter: 2010Q3

REPORT INFORMATION
  Report Type: 
  Country: None (occurrence: None)
  Receive Date: 20100910
  Receipt Date: 20090402
  Transmission Date: 20110219
  Serious: No
  Sender: FDA-Public Use
  Company Number: US-WYE-H08827909

PATIENT
  Sex: Female
  Weight: 77.18 kg

DRUGS (14)
  1. PRISTIQ [Suspect]
     Indication: DEPRESSION
     Route: 048
     Dates: start: 20090301
  2. TRIAMTERENE AND HYDROCHLOROTHIAZID ^HARRIS^ [Concomitant]
  3. ATENOLOL [Concomitant]
  4. CLONIDINE [Concomitant]
  5. LEVOTHYROXINE SODIUM [Concomitant]
  6. SOMA [Concomitant]
  7. AMBIEN CR [Concomitant]
  8. CELEBREX [Concomitant]
  9. SIMVASTATIN [Concomitant]
  10. ZYRTEC [Concomitant]
  11. ADVAIR DISKUS 100/50 [Concomitant]
  12. ESTRADIOL [Concomitant]
  13. VICODIN [Suspect]
     Indication: PAIN
     Dosage: UNKNOWN
     Dates: start: 20090123, end: 20090329
  14. DICYCLOVERINE HYDROCHLORIDE [Concomitant]

REACTIONS (3)
  - CONDITION AGGRAVATED [None]
  - HYPERTENSION [None]
  - TINNITUS [None]
